FAERS Safety Report 7440326-0 (Version None)
Quarter: 2011Q2

REPORT INFORMATION
  Report Type: 
  Country: None (occurrence: None)
  Receive Date: 20110427
  Receipt Date: 20110420
  Transmission Date: 20111010
  Serious: Yes (Other)
  Sender: FDA-Public Use
  Company Number: DE-PFIZER INC-2011086097

PATIENT
  Age: 68 Year
  Sex: Male

DRUGS (2)
  1. VIAGRA [Suspect]
     Dosage: 50 MG, AS NEEDED
  2. VIAGRA [Suspect]
     Dosage: 100 MG, AS NEEDED

REACTIONS (3)
  - PRURITUS [None]
  - RASH MACULAR [None]
  - VARICOSE VEIN [None]
